FAERS Safety Report 8473503-0 (Version None)
Quarter: 2012Q2

REPORT INFORMATION
  Report Type: 
  Country: None (occurrence: None)
  Receive Date: 20120625
  Receipt Date: 20120625
  Transmission Date: 20120825
  Serious: Yes (Other)
  Sender: FDA-Public Use
  Company Number: None

PATIENT
  Sex: Female

DRUGS (1)
  1. FAMOTIDINE [Suspect]
     Indication: HYPERCHLORHYDRIA
     Dosage: 20 MG TWICE A DAY PO 1 TIME USE
     Route: 048
     Dates: start: 20120621

REACTIONS (3)
  - MYOCARDIAL INFARCTION [None]
  - OROPHARYNGEAL PAIN [None]
  - DYSPNOEA [None]
